FAERS Safety Report 5113795-9 (Version None)
Quarter: 2006Q3

REPORT INFORMATION
  Report Type: 
  Country: None (occurrence: None)
  Receive Date: 20060921
  Receipt Date: 20060908
  Transmission Date: 20061208
  Serious: Yes (Death, Hospitalization)
  Sender: FDA-Public Use
  Company Number: HQWYE522111SEP06

PATIENT
  Age: 60 Year
  Sex: Female
  Weight: 68 kg

DRUGS (4)
  1. PREMPRO [Suspect]
     Indication: HORMONE THERAPY
     Dosage: 0.625 MG/2.5MG 1 TABLET DAILY, ORAL
     Route: 048
     Dates: start: 20040101, end: 20060906
  2. ACIPHEX [Concomitant]
  3. WELLBUTRIN [Concomitant]
  4. PEPCID [Concomitant]

REACTIONS (1)
  - HAEMORRHAGIC STROKE [None]
